FAERS Safety Report 8915071 (Version 2)
Quarter: 2012Q4

REPORT INFORMATION
  Report Type: 
  Country: JP (occurrence: JP)
  Receive Date: 20121119
  Receipt Date: 20121231
  Transmission Date: 20130627
  Serious: No
  Sender: FDA-Public Use
  Company Number: JP-ROCHE-1155477

PATIENT
  Age: 59 Year
  Sex: Male

DRUGS (6)
  1. RITUXIMAB [Suspect]
     Indication: B-CELL LYMPHOMA
     Route: 065
  2. METHOTREXATE [Suspect]
     Indication: B-CELL LYMPHOMA
     Dosage: 5800 mg
     Route: 065
  3. CYCLOPHOSPHAMIDE [Suspect]
     Indication: B-CELL LYMPHOMA
     Dosage: 1200 mg
     Route: 065
  4. ADRIACIN [Suspect]
     Indication: B-CELL LYMPHOMA
     Dosage: 80 mg
     Route: 065
  5. VINCRISTINE SULPHATE [Suspect]
     Indication: B-CELL LYMPHOMA
     Dosage: 2.2 mg
     Route: 065
  6. PREDNISOLONE [Suspect]
     Indication: B-CELL LYMPHOMA
     Dosage: 360 mg
     Route: 065

REACTIONS (1)
  - Sweat gland tumour [Unknown]
